FAERS Safety Report 7184896-9 (Version None)
Quarter: 2010Q4

REPORT INFORMATION
  Report Type: 
  Country: None (occurrence: None)
  Receive Date: 20101222
  Receipt Date: 20100526
  Transmission Date: 20110411
  Serious: Yes (Hospitalization)
  Sender: FDA-Public Use
  Company Number: US-AMGEN-QUU414738

PATIENT

DRUGS (1)
  1. ENBREL [Suspect]
     Indication: RHEUMATOID ARTHRITIS
     Dosage: 25 MG, Q3WK
     Route: 058

REACTIONS (4)
  - PHYSICAL DISABILITY [None]
  - PNEUMONIA [None]
  - RHEUMATOID ARTHRITIS [None]
  - TENDON PAIN [None]
